FAERS Safety Report 18942772 (Version 1)
Quarter: 2021Q1

REPORT INFORMATION
  Report Type: Other
  Country: CA (occurrence: CA)
  Receive Date: 20210225
  Receipt Date: 20210225
  Transmission Date: 20210420
  Serious: Yes (Other)
  Sender: FDA-Public Use
  Company Number: CA-CELLTRION INC.-2021CA002260

PATIENT

DRUGS (11)
  1. NABILONE [Concomitant]
     Active Substance: NABILONE
  2. RABEPRAZOLE [Concomitant]
     Active Substance: RABEPRAZOLE
  3. AMLODIPINE [Concomitant]
     Active Substance: AMLODIPINE BESYLATE
  4. HYDROXYCHLOROQUINE SULFATE. [Concomitant]
     Active Substance: HYDROXYCHLOROQUINE SULFATE
  5. TRAZODONE [Concomitant]
     Active Substance: TRAZODONE HYDROCHLORIDE
  6. PRALUENT [Concomitant]
     Active Substance: ALIROCUMAB
  7. ZOPICLONE [Concomitant]
     Active Substance: ZOPICLONE
  8. METOPROLOL. [Concomitant]
     Active Substance: METOPROLOL
  9. RITUXIMAB (UNKNOWN) [Suspect]
     Active Substance: RITUXIMAB
     Indication: SYSTEMIC LUPUS ERYTHEMATOSUS
     Route: 041
  10. COUMADIN [Concomitant]
     Active Substance: WARFARIN SODIUM
  11. PREDNISONE. [Concomitant]
     Active Substance: PREDNISONE

REACTIONS (2)
  - Carotid artery stenosis [Unknown]
  - Off label use [Unknown]
